FAERS Safety Report 8551428-X (Version None)
Quarter: 2012Q3

REPORT INFORMATION
  Report Type: 
  Country: None (occurrence: None)
  Receive Date: 20120730
  Receipt Date: 20120223
  Transmission Date: 20120928
  Serious: No
  Sender: FDA-Public Use
  Company Number: US-ALLERGAN-1201307US

PATIENT
  Sex: Female

DRUGS (2)
  1. RESTASIS [Concomitant]
     Indication: DRY EYE
     Route: 047
  2. LATISSE [Suspect]
     Indication: HYPOTRICHOSIS
     Dosage: 4 GTT, QPM
     Route: 061
     Dates: start: 20110505, end: 20120122

REACTIONS (6)
  - WRONG TECHNIQUE IN DRUG USAGE PROCESS [None]
  - DRUG INEFFECTIVE [None]
  - DRUG ADMINISTRATION ERROR [None]
  - INAPPROPRIATE SCHEDULE OF DRUG ADMINISTRATION [None]
  - DRY EYE [None]
  - ERYTHEMA OF EYELID [None]
